FAERS Safety Report 9589249 (Version 1)
Quarter: 2013Q4

REPORT INFORMATION
  Report Type: Spontaneous
  Country: US (occurrence: US)
  Receive Date: 20131003
  Receipt Date: 20131003
  Transmission Date: 20140711
  Serious: No
  Sender: FDA-Public Use
  Company Number: US-AMGEN-USASP2012069464

PATIENT
  Sex: Female

DRUGS (12)
  1. ENBREL [Suspect]
     Indication: RHEUMATOID ARTHRITIS
     Dosage: 50 MG, QWK
     Route: 058
  2. ENBREL [Suspect]
     Indication: PSORIATIC ARTHROPATHY
  3. ATENOLOL [Concomitant]
     Dosage: 25 MG, UNK
  4. HYDROCHLOROTH [Concomitant]
     Dosage: 12.5 MG, UNK
  5. VITAMIN C                          /00008001/ [Concomitant]
     Dosage: 500 MG, CR
  6. VITAMIN D                          /00107901/ [Concomitant]
     Dosage: 1000 IU, UNK
  7. IRON [Concomitant]
     Dosage: 50 MG, UNK
  8. TAMOXIFEN [Concomitant]
     Dosage: 20 MG, UNK
  9. SULFASALAZIN [Concomitant]
     Dosage: 500 MG, UNK
  10. FOLIC ACID [Concomitant]
     Dosage: 01 MG, UNK
  11. ASPIRIN [Concomitant]
     Dosage: 81 MG, UNK
  12. DETROL LA [Concomitant]
     Dosage: 02 MG, UNK

REACTIONS (3)
  - Drug ineffective [Unknown]
  - Psoriatic arthropathy [Unknown]
  - Rheumatoid arthritis [Unknown]
